FAERS Safety Report 9177966 (Version 1)
Quarter: 2013Q1

REPORT INFORMATION
  Report Type: Report from Study
  Country: US (occurrence: US)
  Receive Date: 20130321
  Receipt Date: 20130321
  Transmission Date: 20140127
  Serious: Yes (Other)
  Sender: FDA-Public Use
  Company Number: US-JNJFOC-20130310701

PATIENT
  Age: 24 Month
  Sex: Female

DRUGS (1)
  1. NUCYNTA [Suspect]
     Indication: ACCIDENTAL EXPOSURE TO PRODUCT
     Route: 048
     Dates: start: 20120904

REACTIONS (1)
  - Accidental exposure to product by child [Unknown]
